FAERS Safety Report 18103378 (Version 5)
Quarter: 2021Q2

REPORT INFORMATION
  Report Type: Spontaneous
  Country: US (occurrence: US)
  Receive Date: 20200803
  Receipt Date: 20210423
  Transmission Date: 20210717
  Serious: No
  Sender: FDA-Public Use
  Company Number: US-PFIZER INC-2020289959

PATIENT
  Age: 47 Year
  Sex: Female
  Weight: 92.97 kg

DRUGS (3)
  1. FEMARA [Concomitant]
     Active Substance: LETROZOLE
     Dosage: UNK
  2. ZOLADEX [Concomitant]
     Active Substance: GOSERELIN ACETATE
     Dosage: UNK
  3. IBRANCE [Suspect]
     Active Substance: PALBOCICLIB
     Indication: BREAST CANCER FEMALE
     Dosage: 125 MG, CYCLIC (21 DAYS ON AND 7 DAYS OFF )
     Route: 048
     Dates: start: 20200610

REACTIONS (9)
  - Hot flush [Recovered/Resolved]
  - Hair growth abnormal [Unknown]
  - Weight increased [Unknown]
  - Retracted nipple [Unknown]
  - Appetite disorder [Unknown]
  - Weight decreased [Not Recovered/Not Resolved]
  - Therapeutic response unexpected [Unknown]
  - Taste disorder [Not Recovered/Not Resolved]
  - Swelling [Unknown]

NARRATIVE: CASE EVENT DATE: 202007
